FAERS Safety Report 8895545 (Version 1)
Quarter: 2012Q4

REPORT INFORMATION
  Report Type: 
  Country: US (occurrence: US)
  Receive Date: 20121108
  Receipt Date: 20121108
  Transmission Date: 20130627
  Serious: Yes (Other)
  Sender: FDA-Public Use
  Company Number: US-ELI_LILLY_AND_COMPANY-US200801003593

PATIENT
  Sex: Male

DRUGS (1)
  1. OLANZAPINE [Suspect]

REACTIONS (7)
  - Gastrointestinal haemorrhage [Unknown]
  - Syncope [Unknown]
  - Type 2 diabetes mellitus [Unknown]
  - Crohn^s disease [Unknown]
  - Abdominal pain upper [Unknown]
  - Gastrointestinal disorder [Unknown]
  - Hypertension [Unknown]
